FAERS Safety Report 15075473 (Version 2)
Quarter: 2019Q2

REPORT INFORMATION
  Report Type: Spontaneous
  Country: US (occurrence: US)
  Receive Date: 20180627
  Receipt Date: 20190626
  Transmission Date: 20190711
  Serious: Yes (Hospitalization)
  Sender: FDA-Public Use
  Company Number: US-SAOL THERAPEUTICS-2018SAO00658

PATIENT
  Sex: Male

DRUGS (3)
  1. LIORESAL [Suspect]
     Active Substance: BACLOFEN
     Dosage: UNK
  2. LIORESAL [Suspect]
     Active Substance: BACLOFEN
     Dosage: 96 ?G, \DAY
     Route: 037
  3. LIORESAL [Suspect]
     Active Substance: BACLOFEN
     Dosage: 50 ?G, \DAY
     Route: 037

REACTIONS (2)
  - Implant site dehiscence [Recovered/Resolved]
  - Implant site infection [Recovered/Resolved]
